FAERS Safety Report 8546230-9 (Version None)
Quarter: 2012Q3

REPORT INFORMATION
  Report Type: 
  Country: None (occurrence: None)
  Receive Date: 20120727
  Receipt Date: 20120724
  Transmission Date: 20120928
  Serious: Yes (Other)
  Sender: FDA-Public Use
  Company Number: DE-EISAI INC-E2090-02228-SPO-DE

PATIENT
  Age: 10 Year
  Sex: Male

DRUGS (2)
  1. VALPROATE SODIUM [Interacting]
     Dosage: 40 MG/KG
     Dates: start: 20040101
  2. ZONEGRAN [Suspect]
     Dosage: UNKNOWN
     Route: 048

REACTIONS (2)
  - DRUG INTERACTION [None]
  - THROMBOCYTOPENIA [None]
